FAERS Safety Report 18562181 (Version 1)
Quarter: 2020Q4

REPORT INFORMATION
  Report Type: Spontaneous
  Country: US (occurrence: MX)
  Receive Date: 20201130
  Receipt Date: 20201130
  Transmission Date: 20210114
  Serious: Yes (Hospitalization, Disabling)
  Sender: FDA-Public Use
  Company Number: MX-BIOMARINAP-MX-2020-133556

PATIENT
  Age: 9 Year
  Sex: Male

DRUGS (1)
  1. ALDURAZYME [Suspect]
     Active Substance: LARONIDASE
     Indication: MUCOPOLYSACCHARIDOSIS I
     Dosage: UNK
     Route: 041
     Dates: start: 20070131

REACTIONS (8)
  - Depression [Unknown]
  - Bone pain [Unknown]
  - Arthralgia [Unknown]
  - Mobility decreased [Recovered/Resolved]
  - Aggression [Unknown]
  - Gait disturbance [Unknown]
  - Emotional distress [Unknown]
  - Temperature intolerance [Unknown]

NARRATIVE: CASE EVENT DATE: 2007
